FAERS Safety Report 10486904 (Version 2)
Quarter: 2014Q4

REPORT INFORMATION
  Report Type: Spontaneous
  Country: GB (occurrence: GB)
  Receive Date: 20141001
  Receipt Date: 20141124
  Transmission Date: 20150528
  Serious: Yes (Other)
  Sender: FDA-Public Use
  Company Number: GB-GILEAD-2014-0116620

PATIENT
  Sex: Male

DRUGS (3)
  1. INTELENCE [Suspect]
     Active Substance: ETRAVIRINE
     Indication: HIV INFECTION
     Dosage: TABLET
     Route: 048
  2. TRUVADA [Suspect]
     Active Substance: EMTRICITABINE\TENOFOVIR DISOPROXIL FUMARATE
     Indication: HIV INFECTION
     Dosage: UNK
     Route: 065
  3. INTELENCE [Suspect]
     Active Substance: ETRAVIRINE
     Route: 048

REACTIONS (3)
  - Neuropathy peripheral [Unknown]
  - Disturbance in attention [Unknown]
  - Mental disorder [Unknown]
